FAERS Safety Report 23923330 (Version 2)
Quarter: 2024Q2

REPORT INFORMATION
  Report Type: Spontaneous
  Country: US (occurrence: US)
  Receive Date: 20240531
  Receipt Date: 20240607
  Transmission Date: 20240716
  Serious: Yes (Life-Threatening, Hospitalization, Other)
  Sender: FDA-Public Use
  Company Number: None

PATIENT

DRUGS (2)
  1. HYDROXYCHLOROQUINE SULFATE [Suspect]
     Active Substance: HYDROXYCHLOROQUINE SULFATE
     Indication: Rheumatoid arthritis
     Dosage: UNK, FILM COATED TABLET
     Dates: start: 202311, end: 202312
  2. SULFASALAZINE [Suspect]
     Active Substance: SULFASALAZINE
     Indication: Rheumatoid arthritis
     Dosage: UNK
     Dates: start: 202311, end: 202312

REACTIONS (24)
  - Epstein-Barr virus infection reactivation [Unknown]
  - Acute respiratory failure [Unknown]
  - Human herpesvirus 6 infection reactivation [Unknown]
  - Cough [Recovering/Resolving]
  - Chills [Recovering/Resolving]
  - Tachycardia [Recovering/Resolving]
  - Tachypnoea [Recovering/Resolving]
  - Lymphadenopathy [Recovering/Resolving]
  - Hepatosplenomegaly [Recovering/Resolving]
  - Rash morbilliform [Recovering/Resolving]
  - Pustule [Recovering/Resolving]
  - Stridor [Recovering/Resolving]
  - Leukocytosis [Recovering/Resolving]
  - Hypertransaminasaemia [Recovering/Resolving]
  - Folliculitis [Recovering/Resolving]
  - Dermatitis psoriasiform [Recovering/Resolving]
  - Arthralgia [Recovering/Resolving]
  - Swelling face [Recovering/Resolving]
  - Drug reaction with eosinophilia and systemic symptoms [Recovering/Resolving]
  - Pyrexia [Recovering/Resolving]
  - Erythema [Recovering/Resolving]
  - Face oedema [Recovering/Resolving]
  - Rash [Recovering/Resolving]
  - Pruritus [Recovering/Resolving]

NARRATIVE: CASE EVENT DATE: 20231201
